FAERS Safety Report 12394644 (Version 3)
Quarter: 2016Q2

REPORT INFORMATION
  Report Type: Spontaneous
  Country: IT (occurrence: IT)
  Receive Date: 20160523
  Receipt Date: 20160630
  Transmission Date: 20160815
  Serious: Yes (Hospitalization)
  Sender: FDA-Public Use
  Company Number: IT-009507513-1605ITA010752

PATIENT
  Age: 65 Year
  Sex: Female
  Weight: 65 kg

DRUGS (7)
  1. FOLINGRAV [Concomitant]
     Indication: ROUTINE HEALTH MAINTENANCE
     Route: 048
  2. IVEMEND [Suspect]
     Active Substance: FOSAPREPITANT DIMEGLUMINE
     Dosage: 150 MG, AS NEEDED
     Route: 042
     Dates: start: 20160506, end: 20160506
  3. DOBETIN [Concomitant]
     Active Substance: CYANOCOBALAMIN
  4. NEBILOX [Concomitant]
     Active Substance: NEBIVOLOL HYDROCHLORIDE
     Route: 048
  5. LOSARTAN POTASSIUM AND HYDROCHLOROTHIAZIDE [Concomitant]
     Active Substance: HYDROCHLOROTHIAZIDE\LOSARTAN POTASSIUM
     Route: 048
  6. IVEMEND [Suspect]
     Active Substance: FOSAPREPITANT DIMEGLUMINE
     Indication: PROPHYLAXIS OF NAUSEA AND VOMITING
     Dosage: 150 MG, AS NEEDED
     Route: 042
     Dates: start: 20160429, end: 20160429
  7. DELTACORTENE [Concomitant]
     Active Substance: PREDNISONE
     Route: 048

REACTIONS (3)
  - Atrial fibrillation [Unknown]
  - Erythema [Unknown]
  - Headache [Unknown]

NARRATIVE: CASE EVENT DATE: 20160506
